FAERS Safety Report 7861109-3 (Version None)
Quarter: 2011Q4

REPORT INFORMATION
  Report Type: 
  Country: None (occurrence: None)
  Receive Date: 20111027
  Receipt Date: 20111018
  Transmission Date: 20120403
  Serious: Yes (Hospitalization)
  Sender: FDA-Public Use
  Company Number: PL-ELI_LILLY_AND_COMPANY-PL201110004455

PATIENT
  Sex: Male
  Weight: 80 kg

DRUGS (2)
  1. GEMCITABINE HYDROCHLORIDE [Suspect]
     Indication: NON-SMALL CELL LUNG CANCER STAGE IV
     Dosage: 2362.5 MG, EVERY 21 DAYS/CYCLE
     Route: 042
     Dates: start: 20110831
  2. CISPLATIN [Suspect]
     Indication: NON-SMALL CELL LUNG CANCER STAGE IV
     Dosage: 141.75 MG, EVERY 21 DAYS/CYCLE
     Route: 042
     Dates: start: 20110831

REACTIONS (1)
  - MYOCARDIAL INFARCTION [None]
